FAERS Safety Report 18511328 (Version 1)
Quarter: 2020Q4

REPORT INFORMATION
  Report Type: Spontaneous
  Country: DE (occurrence: DE)
  Receive Date: 20201117
  Receipt Date: 20201117
  Transmission Date: 20210114
  Serious: Yes (Hospitalization)
  Sender: FDA-Public Use
  Company Number: DE-MYLANLABS-2020M1094106

PATIENT
  Age: 75 Year
  Sex: Female

DRUGS (9)
  1. FENOTEROL W/IPRATROPIUM BROMIDE [Concomitant]
     Dosage: 0.05|0.02 MG, IF NECESSARY, DOSAGE AEROSOL
     Route: 055
  2. TORASEMIDE [Suspect]
     Active Substance: TORSEMIDE
     Indication: PRODUCT USED FOR UNKNOWN INDICATION
     Dosage: 10 MG, 1-0-0-0, TABLETTEN
     Route: 048
  3. APIXABAN [Concomitant]
     Active Substance: APIXABAN
     Dosage: 2.5 MG, 1-0-1-0, TABLETTEN
     Route: 048
  4. IBUPROFEN. [Concomitant]
     Active Substance: IBUPROFEN
     Dosage: 600 MG, 3X, TABLETTEN
     Route: 048
  5. VALSARTAN. [Concomitant]
     Active Substance: VALSARTAN
     Dosage: 80 MG, 1-0-0-0, TABLETTEN
     Route: 048
  6. COLECALCIFEROL [Concomitant]
     Active Substance: CHOLECALCIFEROL
     Dosage: 1000 IE, 1-0-0-0, TABLETTEN
     Route: 048
  7. SIMVASTATIN. [Concomitant]
     Active Substance: SIMVASTATIN
     Dosage: 20 MG, 0-0-1-0, TABLETTEN
     Route: 048
  8. METOPROLOL. [Concomitant]
     Active Substance: METOPROLOL
     Dosage: 23.75 MG, 1-0-0-1, RETARD-TABLETTEN
     Route: 048
  9. BUDESONIDE W/FORMOTEROL [Concomitant]
     Active Substance: BUDESONIDE\FORMOTEROL
     Dosage: 320|9 ?G, 1-0-0-1, KAPSELN
     Route: 055

REACTIONS (4)
  - Constipation [Unknown]
  - Abdominal pain [Unknown]
  - Abdominal pain lower [Unknown]
  - General physical health deterioration [Unknown]

NARRATIVE: CASE EVENT DATE: 2020
